FAERS Safety Report 21890221 (Version 2)
Quarter: 2023Q1

REPORT INFORMATION
  Report Type: Spontaneous
  Country: FR (occurrence: FR)
  Receive Date: 20230120
  Receipt Date: 20230213
  Transmission Date: 20230418
  Serious: Yes (Hospitalization)
  Sender: FDA-Public Use
  Company Number: None

PATIENT
  Age: 79 Year
  Sex: Male
  Weight: 75 kg

DRUGS (1)
  1. ERBITUX [Suspect]
     Active Substance: CETUXIMAB
     Indication: Squamous cell carcinoma
     Dosage: 600 MG, 2/M
     Route: 042
     Dates: start: 20220601, end: 20221215

REACTIONS (1)
  - Skin toxicity [Unknown]

NARRATIVE: CASE EVENT DATE: 20220601
